FAERS Safety Report 5215407-2 (Version None)
Quarter: 2007Q1

REPORT INFORMATION
  Report Type: 
  Country: None (occurrence: None)
  Receive Date: 20070116
  Receipt Date: 20070104
  Transmission Date: 20070707
  Serious: Yes (Death, Hospitalization)
  Sender: FDA-Public Use
  Company Number: 151491ISR

PATIENT
  Age: 56 Year
  Sex: Female

DRUGS (5)
  1. CISPLATIN [Suspect]
     Dosage: 1 MG/ML INTRAVENOUS
     Route: 042
     Dates: start: 20061019, end: 20061019
  2. ETOPOSIDE [Suspect]
     Dosage: 20 MG/ML INTRAVENOUS
     Route: 042
     Dates: start: 20061019, end: 20061021
  3. DEXAMETHASONE [Suspect]
     Dosage: INTRAVENOUS
     Route: 042
  4. ONDANSETRON [Concomitant]
  5. DEXAMETHASONE [Concomitant]

REACTIONS (2)
  - CARDIOMYOPATHY [None]
  - RENAL FAILURE [None]
